FAERS Safety Report 12825057 (Version 1)
Quarter: 2016Q4

REPORT INFORMATION
  Report Type: Report from Study
  Country: AU (occurrence: AU)
  Receive Date: 20161007
  Receipt Date: 20161007
  Transmission Date: 20170207
  Serious: Yes (Hospitalization)
  Sender: FDA-Public Use
  Company Number: AU-IPCA LABORATORIES LIMITED-IPC201609-000837

PATIENT

DRUGS (9)
  1. SIMVASTATIN. [Suspect]
     Active Substance: SIMVASTATIN
  2. PARACETAMOL [Suspect]
     Active Substance: ACETAMINOPHEN
  3. EZETIMIBE. [Suspect]
     Active Substance: EZETIMIBE
  4. METFORMIN HYDROCHLORIDE. [Suspect]
     Active Substance: METFORMIN HYDROCHLORIDE
  5. AMOXICILLIN. [Suspect]
     Active Substance: AMOXICILLIN
  6. CODEINE [Suspect]
     Active Substance: CODEINE
  7. ALLOPURINOL. [Suspect]
     Active Substance: ALLOPURINOL
  8. ROXITHROMYCIN [Suspect]
     Active Substance: ROXITHROMYCIN
  9. CLAVULANIC ACID [Suspect]
     Active Substance: CLAVULANIC ACID

REACTIONS (1)
  - Drug-induced liver injury [Unknown]
